FAERS Safety Report 11364133 (Version 1)
Quarter: 2015Q3

REPORT INFORMATION
  Report Type: Spontaneous
  Country: US (occurrence: US)
  Receive Date: 20150811
  Receipt Date: 20150811
  Transmission Date: 20151125
  Serious: Yes (Hospitalization, Other)
  Sender: FDA-Public Use
  Company Number: US-ACTAVIS-2015-16571

PATIENT
  Age: 70 Year
  Sex: Female
  Weight: 52 kg

DRUGS (16)
  1. HYDROCODONE BITARTRATE/ACETAMINOPHEN 7.5/325 (ACTAVIS LABORATORIES FL) [Suspect]
     Active Substance: ACETAMINOPHEN\HYDROCODONE BITARTRATE
     Indication: PAIN
     Dosage: 7.5/325 MG
     Route: 048
  2. LEVOTHYROXINE. [Concomitant]
     Active Substance: LEVOTHYROXINE
     Indication: HYPOTHYROIDISM
     Dosage: 88 MG, DAILY
  3. MELOXICAM. [Concomitant]
     Active Substance: MELOXICAM
     Indication: ARTHRITIS
     Dosage: 15 MG, DAILY
  4. ALBUTEROL                          /00139501/ [Concomitant]
     Active Substance: ALBUTEROL
     Indication: CHRONIC OBSTRUCTIVE PULMONARY DISEASE
     Dosage: UNK, PRN
  5. LYRICA [Suspect]
     Active Substance: PREGABALIN
     Dosage: 75 UNK, UNK
     Route: 048
  6. OSCAL D [Concomitant]
     Active Substance: CALCIUM CARBONATE\CHOLECALCIFEROL
     Indication: MINERAL SUPPLEMENTATION
     Dosage: 2 DF, DAILY
  7. PANTOPRAZOLE [Concomitant]
     Active Substance: PANTOPRAZOLE SODIUM
     Indication: GASTROINTESTINAL DISORDER
     Dosage: 20 MG, DAILY
  8. PHENERGAN WITH CODEINE             /01129901/ [Concomitant]
     Indication: UPPER-AIRWAY COUGH SYNDROME
  9. HYDROCODONE BITARTRATE AND ACETAMINOPHEN [Suspect]
     Active Substance: ACETAMINOPHEN\HYDROCODONE BITARTRATE
     Indication: PAIN
     Dosage: 10/325 MG 3-4 TIMES PER DAY AS NEEDED
     Route: 048
     Dates: start: 201405
  10. HYDROCODONE BITARTRATE/ACETAMINOPHEN 5/325 MG (WATSON LABORATORIES) [Suspect]
     Active Substance: ACETAMINOPHEN\HYDROCODONE BITARTRATE
     Indication: PAIN
     Dosage: 5/325 MG
     Route: 048
  11. LYRICA [Suspect]
     Active Substance: PREGABALIN
     Indication: BURNING SENSATION
     Dosage: 150 MG, TID
     Route: 048
  12. LYRICA [Suspect]
     Active Substance: PREGABALIN
     Dosage: 50 UNK, UNK
     Route: 048
     Dates: start: 201406
  13. FOSAMAX [Concomitant]
     Active Substance: ALENDRONATE SODIUM
     Indication: BONE DISORDER
     Dosage: 70 MG, 1/WEEK
  14. AMLODIPINE [Concomitant]
     Active Substance: AMLODIPINE BESYLATE
     Indication: HYPERTENSION
     Dosage: 10 MG, UNK
  15. THEOPHYLLINE [Concomitant]
     Active Substance: THEOPHYLLINE ANHYDROUS
     Indication: DYSPNOEA
  16. PHENERGAN WITH CODEINE             /01129901/ [Concomitant]
     Indication: COUGH
     Dosage: DOES NOT USE VERY OFTEN

REACTIONS (12)
  - Weight decreased [Unknown]
  - Bone marrow disorder [Unknown]
  - Haemochromatosis [Not Recovered/Not Resolved]
  - Drug ineffective [Unknown]
  - Polycythaemia [Unknown]
  - Gastritis [Not Recovered/Not Resolved]
  - Loss of consciousness [Unknown]
  - Oestrogen receptor positive breast cancer [Unknown]
  - Gait disturbance [Unknown]
  - Breast cancer stage II [Unknown]
  - Diabetes mellitus [Unknown]
  - Large intestine polyp [Unknown]

NARRATIVE: CASE EVENT DATE: 20140820
